FAERS Safety Report 20290634 (Version 1)
Quarter: 2022Q1

REPORT INFORMATION
  Report Type: Spontaneous
  Country: ES (occurrence: ES)
  Receive Date: 20220104
  Receipt Date: 20220104
  Transmission Date: 20220423
  Serious: Yes (Other)
  Sender: FDA-Public Use
  Company Number: None

PATIENT
  Age: 72 Year
  Sex: Female

DRUGS (3)
  1. CLONAZEPAM [Interacting]
     Active Substance: CLONAZEPAM
     Indication: Orthostatic tremor
  2. PREGABALIN [Interacting]
     Active Substance: PREGABALIN
     Indication: Orthostatic tremor
  3. PERAMPANEL [Interacting]
     Active Substance: PERAMPANEL
     Indication: Orthostatic tremor
     Dosage: 2 MG, QD

REACTIONS (8)
  - Balance disorder [Unknown]
  - Drug interaction [Unknown]
  - Off label use [Unknown]
  - Rebound effect [Unknown]
  - Tremor [Unknown]
  - Gait disturbance [Unknown]
  - Orthostatic tremor [Unknown]
  - Condition aggravated [Unknown]
